FAERS Safety Report 8401206-7 (Version None)
Quarter: 2012Q2

REPORT INFORMATION
  Report Type: 
  Country: None (occurrence: None)
  Receive Date: 20120601
  Receipt Date: 20120525
  Transmission Date: 20120825
  Serious: Yes (Life-Threatening)
  Sender: FDA-Public Use
  Company Number: PHEH2012US011056

PATIENT
  Sex: Female

DRUGS (4)
  1. LEVOTHYROXINE SODIUM [Concomitant]
     Indication: THYROID DISORDER
     Dosage: 75 UG, QD
     Route: 048
  2. BACTRIM [Suspect]
     Indication: URINARY TRACT DISORDER
     Dosage: 1 DF, BID
     Route: 048
  3. SIMVASTATIN [Concomitant]
     Indication: BLOOD CHOLESTEROL
     Dosage: 80 MG, QD
     Route: 048
  4. EXFORGE [Suspect]
     Indication: BLOOD PRESSURE
     Dosage: 1 DF (160 MG VALS AND 5 MG AMLO), QD
     Route: 048
     Dates: start: 20120421

REACTIONS (4)
  - LIP SWELLING [None]
  - ALOPECIA [None]
  - HYPERSENSITIVITY [None]
  - FEELING ABNORMAL [None]
